FAERS Safety Report 24742171 (Version 1)
Quarter: 2024Q4

REPORT INFORMATION
  Report Type: Spontaneous
  Country: PT (occurrence: PT)
  Receive Date: 20241217
  Receipt Date: 20241217
  Transmission Date: 20250115
  Serious: Yes (Hospitalization)
  Sender: SAMSUNG BIOEPIS
  Company Number: PT-SAMSUNG BIOEPIS-SB-2024-38258

PATIENT
  Age: 18 Year
  Sex: Female

DRUGS (1)
  1. INFLIXIMAB [Suspect]
     Active Substance: INFLIXIMAB
     Indication: Colitis ulcerative
     Dosage: 5 INFUSIONS OVER 6 MONTHS;

REACTIONS (1)
  - Retinal vein thrombosis [Recovered/Resolved]
